FAERS Safety Report 8141351-7 (Version None)
Quarter: 2012Q1

REPORT INFORMATION
  Report Type: 
  Country: None (occurrence: None)
  Receive Date: 20120216
  Receipt Date: 20120207
  Transmission Date: 20120608
  Serious: Yes (Hospitalization, Other)
  Sender: FDA-Public Use
  Company Number: US-ROCHE-383164

PATIENT
  Sex: Female
  Weight: 80.1 kg

DRUGS (6)
  1. HERCEPTIN [Suspect]
     Route: 042
     Dates: start: 20031101, end: 20040901
  2. CYCLOPHOSPHAMIDE [Suspect]
     Indication: BREAST CANCER
     Dosage: OVER 30 MIN ON DAY 1 FOR 4 CYCLES
     Route: 042
     Dates: start: 20030404, end: 20030608
  3. PACLITAXEL [Suspect]
     Indication: BREAST CANCER
     Dosage: OVER 1 HR QW ON DAY 1, FOR 12 WEEKS, STARTING ON WEEK 13
     Route: 042
  4. HERCEPTIN [Suspect]
     Dosage: LAST DOSE PRIOR TO SAE: 16 SEP 2004.
     Route: 042
     Dates: start: 20030604, end: 20040916
  5. HERCEPTIN [Suspect]
     Indication: BREAST CANCER
     Route: 042
     Dates: start: 20030604, end: 20040928
  6. DOXORUBICIN HCL [Suspect]
     Indication: BREAST CANCER
     Route: 042
     Dates: start: 20030604, end: 20030608

REACTIONS (3)
  - MYOCARDIAL INFARCTION [None]
  - VENTRICULAR DYSFUNCTION [None]
  - LEFT VENTRICULAR DYSFUNCTION [None]
